FAERS Safety Report 18887415 (Version 1)
Quarter: 2021Q1

REPORT INFORMATION
  Report Type: Report from Study
  Country: DK (occurrence: DK)
  Receive Date: 20210212
  Receipt Date: 20210212
  Transmission Date: 20210420
  Serious: Yes (Death, Other)
  Sender: FDA-Public Use
  Company Number: DK-PFIZER INC-2021142805

PATIENT

DRUGS (4)
  1. VINBLASTINE [Suspect]
     Active Substance: VINBLASTINE
     Indication: HODGKIN^S DISEASE
     Dosage: UNK, CYCLIC (ON DAYS 1 AND 15 OF EACH 28?DAY CYCLE FOR UP TO 6 CYCLES)
     Route: 042
  2. BRENTUXIMAB VEDOTIN RECOMBINANT [Suspect]
     Active Substance: BRENTUXIMAB VEDOTIN
     Indication: HODGKIN^S DISEASE
     Dosage: UNK, CYCLIC (ON DAYS 1 AND 15 OF EACH 28?DAY CYCLE FOR UP TO 6 CYCLES)
     Route: 042
  3. DOXORUBICIN HCL [Suspect]
     Active Substance: DOXORUBICIN HYDROCHLORIDE
     Indication: HODGKIN^S DISEASE
     Dosage: UNK, CYCLIC (ON DAYS 1 AND 15 OF EACH 28?DAY CYCLE FOR UP TO 6 CYCLES)
     Route: 042
  4. DACARBAZINE. [Suspect]
     Active Substance: DACARBAZINE
     Indication: HODGKIN^S DISEASE
     Dosage: UNK, CYCLIC (ON DAYS 1 AND 15 OF EACH 28?DAY CYCLE FOR UP TO 6 CYCLES)
     Route: 042

REACTIONS (1)
  - Death [Fatal]
